FAERS Safety Report 4679176-7 (Version None)
Quarter: 2005Q2

REPORT INFORMATION
  Report Type: 
  Country: None (occurrence: None)
  Receive Date: 20050526
  Receipt Date: 20050208
  Transmission Date: 20051028
  Serious: Yes (Hospitalization)
  Sender: FDA-Public Use
  Company Number: WAES 0502USA00905

PATIENT
  Age: 66 Year
  Sex: Male

DRUGS (10)
  1. VYTORIN [Suspect]
     Indication: HYPERCHOLESTEROLAEMIA
     Dosage: 10-40 MG/DAILY/PO
     Route: 048
     Dates: end: 20041216
  2. BETOPTIC [Concomitant]
  3. NEURONTIN [Concomitant]
  4. PRINIVIL [Concomitant]
  5. SYNTHROID [Concomitant]
  6. ZOCOR [Concomitant]
  7. ASPIRIN [Concomitant]
  8. NORTRIPTYLINE HCL [Concomitant]
  9. PREDNISONE TAB [Concomitant]
  10. VERAPAMIL [Concomitant]

REACTIONS (1)
  - RHABDOMYOLYSIS [None]
